FAERS Safety Report 14283849 (Version 1)
Quarter: 2017Q4

REPORT INFORMATION
  Report Type: Spontaneous
  Country: US (occurrence: US)
  Receive Date: 20171213
  Receipt Date: 20171213
  Transmission Date: 20180321
  Serious: Yes (Other)
  Sender: FDA-Public Use
  Company Number: None

PATIENT
  Age: 83 Year
  Sex: Female
  Weight: 67.5 kg

DRUGS (3)
  1. MECLIZINE [Concomitant]
     Active Substance: MECLIZINE HYDROCHLORIDE
  2. CAPECITABINE. [Suspect]
     Active Substance: CAPECITABINE
     Indication: BREAST DISORDER
     Route: 048
     Dates: start: 20160121, end: 20171213
  3. TIMOLOL. [Concomitant]
     Active Substance: TIMOLOL

REACTIONS (2)
  - Therapy cessation [None]
  - Disease progression [None]

NARRATIVE: CASE EVENT DATE: 20171213
